FAERS Safety Report 9817675 (Version 1)
Quarter: 2013Q4

REPORT INFORMATION
  Report Type: Spontaneous
  Country: US (occurrence: None)
  Receive Date: 20131223
  Receipt Date: 20131223
  Transmission Date: 20140711
  Serious: Yes (Other)
  Sender: FDA-Public Use
  Company Number: 219656

PATIENT
  Age: 63 Year
  Sex: Female

DRUGS (3)
  1. PICATO [Suspect]
     Indication: ACTINIC KERATOSIS
     Dates: start: 20121108, end: 20121110
  2. CREASTOR (ROSUVASTATIN) [Concomitant]
  3. MICARDIS (TELMISARTAN) [Concomitant]

REACTIONS (2)
  - Application site erythema [None]
  - Application site exfoliation [None]
